FAERS Safety Report 6794070-3 (Version None)
Quarter: 2010Q2

REPORT INFORMATION
  Report Type: 
  Country: None (occurrence: None)
  Receive Date: 20100624
  Receipt Date: 20090924
  Transmission Date: 20101027
  Serious: No
  Sender: FDA-Public Use
  Company Number: US-PFIZER INC-2009237107

PATIENT
  Sex: Female
  Weight: 58.503 kg

DRUGS (3)
  1. RELPAX [Suspect]
     Indication: MIGRAINE
     Dosage: UNK
  2. SAM-E [Concomitant]
  3. VITAMIN B [Concomitant]
     Dosage: UNK

REACTIONS (3)
  - CHILLS [None]
  - PAIN [None]
  - PYREXIA [None]
